FAERS Safety Report 9466353 (Version 6)
Quarter: 2014Q3

REPORT INFORMATION
  Report Type: Spontaneous
  Country: US (occurrence: US)
  Receive Date: 20130820
  Receipt Date: 20140703
  Transmission Date: 20150326
  Serious: Yes (Disabling)
  Sender: FDA-Public Use
  Company Number: US-009507513-1308USA006874

PATIENT
  Sex: Male

DRUGS (2)
  1. PROPECIA [Suspect]
     Active Substance: FINASTERIDE
     Indication: ANDROGENETIC ALOPECIA
     Dosage: 1 MG, QD
     Route: 048
     Dates: start: 1998, end: 20120104
  2. PROSCAR [Suspect]
     Active Substance: FINASTERIDE
     Indication: ANDROGENETIC ALOPECIA
     Dosage: 5 MG,  1/2 TABLET QD
     Route: 048
     Dates: start: 20120104

REACTIONS (17)
  - Libido decreased [Not Recovered/Not Resolved]
  - Ejaculation disorder [Not Recovered/Not Resolved]
  - Hypertension [Unknown]
  - Anxiety [Not Recovered/Not Resolved]
  - Orgasm abnormal [Not Recovered/Not Resolved]
  - Seborrhoeic keratosis [Unknown]
  - Erectile dysfunction [Not Recovered/Not Resolved]
  - Dermal cyst [Recovered/Resolved]
  - Melanocytic naevus [Recovered/Resolved]
  - Pyogenic granuloma [Recovered/Resolved]
  - Depression [Not Recovered/Not Resolved]
  - Wrong technique in drug usage process [Unknown]
  - Vasectomy [Unknown]
  - Dysplastic naevus [Recovered/Resolved]
  - Seborrhoeic dermatitis [Unknown]
  - Drug administration error [Unknown]
  - Cognitive disorder [Not Recovered/Not Resolved]

NARRATIVE: CASE EVENT DATE: 1998
